FAERS Safety Report 20819780 (Version 1)
Quarter: 2022Q2

REPORT INFORMATION
  Report Type: Report from Study
  Country: FR (occurrence: FR)
  Receive Date: 20220512
  Receipt Date: 20220512
  Transmission Date: 20220721
  Serious: Yes (Death, Hospitalization, Other)
  Sender: FDA-Public Use
  Company Number: FR-BRISTOL-MYERS SQUIBB COMPANY-2022-034553

PATIENT
  Sex: Male
  Weight: 45.5 kg

DRUGS (10)
  1. CISPLATIN [Suspect]
     Active Substance: CISPLATIN
     Indication: Squamous cell carcinoma of head and neck
     Dosage: CYCLE1 D1
     Route: 065
     Dates: start: 20211021
  2. CISPLATIN [Suspect]
     Active Substance: CISPLATIN
     Dosage: CYCLE 2 D22
     Route: 065
     Dates: start: 20211110
  3. CISPLATIN [Suspect]
     Active Substance: CISPLATIN
     Dosage: CYCLE3 D43
     Route: 065
     Dates: start: 20211202
  4. NIVOLUMAB [Suspect]
     Active Substance: NIVOLUMAB
     Indication: Squamous cell carcinoma of head and neck
     Dosage: LEAD IN PHASE (D-14 _D10)
     Route: 065
     Dates: start: 20211007
  5. NIVOLUMAB [Suspect]
     Active Substance: NIVOLUMAB
     Dosage: CYCLE1 (D1)
     Route: 065
     Dates: start: 20211021
  6. NIVOLUMAB [Suspect]
     Active Substance: NIVOLUMAB
     Dosage: CYCLE 2 (D22)
     Route: 065
     Dates: start: 20211110
  7. NIVOLUMAB [Suspect]
     Active Substance: NIVOLUMAB
     Dosage: CYCLE (D43)
     Route: 065
     Dates: start: 20211202
  8. NIVOLUMAB\RELATLIMAB-RMBW [Suspect]
     Active Substance: NIVOLUMAB\RELATLIMAB-RMBW
     Dosage: CYCLE1 (D1)
     Route: 065
     Dates: start: 20211021
  9. NIVOLUMAB\RELATLIMAB-RMBW [Suspect]
     Active Substance: NIVOLUMAB\RELATLIMAB-RMBW
     Dosage: CYCLE 2 (D22)
     Route: 065
     Dates: start: 20211110
  10. NIVOLUMAB\RELATLIMAB-RMBW [Suspect]
     Active Substance: NIVOLUMAB\RELATLIMAB-RMBW
     Dosage: CYCLE (D43)
     Route: 065
     Dates: start: 20211202

REACTIONS (3)
  - Fall [Unknown]
  - Cardiac arrest [Unknown]
  - Death [Fatal]

NARRATIVE: CASE EVENT DATE: 20220120
